FAERS Safety Report 9324859 (Version 1)
Quarter: 2013Q2

REPORT INFORMATION
  Report Type: Spontaneous
  Country: GB (occurrence: None)
  Receive Date: 20130529
  Receipt Date: 20130529
  Transmission Date: 20140414
  Serious: Yes (Hospitalization)
  Sender: FDA-Public Use
  Company Number: TUK2013A00140

PATIENT
  Age: 68 Year
  Sex: Female

DRUGS (9)
  1. PIOGLITAZONE HYDROCHLORIDE [Suspect]
     Indication: PRODUCT USED FOR UNKNOWN INDICATION
     Dates: start: 20130212, end: 20130409
  2. ASIPRIN(ACETYLSALICYLIC ACID) [Concomitant]
  3. ATORVASTATIN(ATORVASTATIN) [Concomitant]
  4. FERROUS FUMARATE(FERROUS FUMARATE) [Concomitant]
  5. FUROSEMIDE(FUROSEMIDE) [Concomitant]
  6. GLICLAZIDE(GLICLAZIDE) [Concomitant]
  7. LANSOPRAZOLE(LANSOPRAZOLE) [Concomitant]
  8. LOSARTAN(LOSARTAN) [Concomitant]
  9. TRIHEXYPHENIDYL HYDROCHLORIDE(TRIHEXYPHENIDYL HYDROCHLORIDE) [Concomitant]

REACTIONS (1)
  - Acute left ventricular failure [None]
